FAERS Safety Report 15349528 (Version 2)
Quarter: 2018Q3

REPORT INFORMATION
  Report Type: Spontaneous
  Country: CA (occurrence: CA)
  Receive Date: 20180904
  Receipt Date: 20180910
  Transmission Date: 20181010
  Serious: Yes (Life-Threatening, Hospitalization)
  Sender: FDA-Public Use
  Company Number: CA-GEHC-2018CSU003410

PATIENT

DRUGS (5)
  1. VISIPAQUE [Suspect]
     Active Substance: IODIXANOL
     Indication: RENAL CYST
     Dosage: 90 ML, SINGLE
     Route: 042
     Dates: start: 20180829, end: 20180829
  2. MULTIVITAMIN                       /00097801/ [Concomitant]
     Active Substance: VITAMINS
     Dosage: UNK, QD (ONE PER DAY)
  3. SANDOZ IRBESARTAN [Concomitant]
     Active Substance: IRBESARTAN
     Dosage: 150 MG, QD
  4. CALCIUM [Concomitant]
     Active Substance: CALCIUM
     Dosage: UNK, QD (ONE PER DAY)
  5. VITAMIN D                          /00107901/ [Concomitant]
     Active Substance: ERGOCALCIFEROL
     Dosage: UNK, QD (ONE PER DAY)

REACTIONS (1)
  - Anaphylactic reaction [Recovered/Resolved]

NARRATIVE: CASE EVENT DATE: 20180829
